FAERS Safety Report 5411546-1 (Version None)
Quarter: 2007Q3

REPORT INFORMATION
  Report Type: 
  Country: None (occurrence: None)
  Receive Date: 20070810
  Receipt Date: 20070802
  Transmission Date: 20080115
  Serious: Yes (Hospitalization)
  Sender: FDA-Public Use
  Company Number: DE-ABBOTT-06P-062-0324395-02

PATIENT
  Sex: Female

DRUGS (12)
  1. HUMIRA [Suspect]
     Indication: RHEUMATOID ARTHRITIS
     Route: 058
     Dates: start: 20031016, end: 20060119
  2. HUMIRA [Suspect]
     Route: 058
     Dates: start: 20060217
  3. PREDNISOLONE [Concomitant]
     Indication: RHEUMATOID ARTHRITIS
     Dates: start: 20050101
  4. ALENDRONATE SODIUM [Concomitant]
     Indication: OSTEOPOROSIS
     Dates: start: 20031101
  5. COLECALCIFEROL [Concomitant]
     Indication: OSTEOPOROSIS
     Dosage: 1000 TE
     Dates: start: 20020101
  6. CALCIUM CARBONATE [Concomitant]
     Indication: OSTEOPOROSIS
     Dosage: 500 MG CALCIUM
     Dates: start: 20020101
  7. TILIDINE HYDROCHLORIDE [Concomitant]
     Indication: ARTHRALGIA
     Dates: start: 20040901
  8. CARBAMAZEPINE [Concomitant]
     Indication: ARTHRALGIA
     Dates: start: 19970101
  9. DYAZIDE [Concomitant]
     Indication: OEDEMA
  10. TRIAMTERENE [Concomitant]
     Indication: OEDEMA
  11. HYDROCHLOROTHIAZIDE [Concomitant]
     Indication: OEDEMA
  12. PANTOPRAZOLE SODIUM [Concomitant]
     Indication: GASTROOESOPHAGEAL REFLUX PROPHYLAXIS

REACTIONS (1)
  - EOSINOPHILIA [None]
